FAERS Safety Report 23511120 (Version 1)
Quarter: 2024Q1

REPORT INFORMATION
  Report Type: Spontaneous
  Country: US (occurrence: US)
  Receive Date: 20240212
  Receipt Date: 20240212
  Transmission Date: 20240410
  Serious: Yes (Other)
  Sender: FDA-Public Use
  Company Number: US-CHEPLA-2024001664

PATIENT
  Sex: Female

DRUGS (7)
  1. BUDESONIDE [Suspect]
     Active Substance: BUDESONIDE
  2. RUXOLITINIB PHOSPHATE [Suspect]
     Active Substance: RUXOLITINIB PHOSPHATE
     Indication: Chronic graft versus host disease
  3. MEDROL [Suspect]
     Active Substance: METHYLPREDNISOLONE
  4. CYCLOSPORINE [Suspect]
     Active Substance: CYCLOSPORINE
  5. SIROLIMUS [Suspect]
     Active Substance: SIROLIMUS
  6. TACROLIMUS [Suspect]
     Active Substance: TACROLIMUS
  7. RITUXAN [Suspect]
     Active Substance: RITUXIMAB

REACTIONS (2)
  - Graft versus host disease in liver [Unknown]
  - Condition aggravated [Unknown]
